FAERS Safety Report 7878258-6 (Version None)
Quarter: 2011Q4

REPORT INFORMATION
  Report Type: 
  Country: None (occurrence: None)
  Receive Date: 20111027
  Receipt Date: 20111017
  Transmission Date: 20120403
  Serious: Yes (Other)
  Sender: FDA-Public Use
  Company Number: 2011SP049710

PATIENT
  Age: 55 Year
  Sex: Male

DRUGS (2)
  1. TEMODAR [Suspect]
     Indication: PRODUCT USED FOR UNKNOWN INDICATION
  2. AVASTIN [Concomitant]

REACTIONS (1)
  - GLIOBLASTOMA MULTIFORME [None]
